FAERS Safety Report 7653132-9 (Version None)
Quarter: 2011Q3

REPORT INFORMATION
  Report Type: 
  Country: None (occurrence: None)
  Receive Date: 20110728
  Receipt Date: 20110715
  Transmission Date: 20111222
  Serious: Yes (Disabling)
  Sender: FDA-Public Use
  Company Number: 2011MA009308

PATIENT
  Age: 48 Year
  Sex: Female

DRUGS (11)
  1. SERTRALINE HYDROCHLORIDE [Suspect]
     Dates: start: 20110711
  2. CIPROFLOXACIN [Concomitant]
  3. MORPHINE [Concomitant]
  4. MIRTAZAPINE [Concomitant]
  5. OLIVE OIL [Concomitant]
  6. ZOPICLONE [Concomitant]
  7. AMOXICILLIN [Concomitant]
  8. LEVOTHYROXINE SODIUM [Concomitant]
  9. DAKTACORT [Concomitant]
  10. AMITRIPTYLINE HCL [Concomitant]
  11. LEVOTHYROXINE SODIUM [Concomitant]

REACTIONS (2)
  - THROAT TIGHTNESS [None]
  - SWELLING FACE [None]
